FAERS Safety Report 16555868 (Version 1)
Quarter: 2019Q3

REPORT INFORMATION
  Report Type: Spontaneous
  Country: CN (occurrence: CN)
  Receive Date: 20190710
  Receipt Date: 20190710
  Transmission Date: 20191004
  Serious: Yes (Other)
  Sender: FDA-Public Use
  Company Number: CN-MALLINCKRODT-T201904958

PATIENT
  Age: 56 Year
  Sex: Female
  Weight: 57 kg

DRUGS (1)
  1. OXYCODONE/ACETAMINOPHEN [Suspect]
     Active Substance: ACETAMINOPHEN\OXYCODONE HYDROCHLORIDE
     Indication: PROCEDURAL PAIN
     Dosage: 1 DF, TID
     Route: 048
     Dates: start: 20190702, end: 20190702

REACTIONS (3)
  - Retching [Recovered/Resolved]
  - Amaurosis fugax [Recovered/Resolved]
  - Palpitations [Recovered/Resolved]

NARRATIVE: CASE EVENT DATE: 20190702
